FAERS Safety Report 9708516 (Version 3)
Quarter: 2013Q4

REPORT INFORMATION
  Report Type: Spontaneous
  Country: US (occurrence: None)
  Receive Date: 20131121
  Receipt Date: 20131217
  Transmission Date: 20140711
  Serious: Yes (Other)
  Sender: FDA-Public Use
  Company Number: US-2013-12107

PATIENT
  Age: 38 Year
  Sex: Male

DRUGS (7)
  1. OPC-41061 [Suspect]
     Indication: CONGENITAL CYSTIC KIDNEY DISEASE
     Dosage: 90 MG MILLIGRAM(S), DAILY DOSE, ORAL
     Route: 048
     Dates: start: 20130628, end: 20131031
  2. LISINOPRIL (LISINOPRIL) [Concomitant]
  3. PERCOCET (OXYCODONE HYDROCHLORIDE, PARACETAMOL)? [Concomitant]
  4. PANTOPRAZOLE SODIUM (PANTOPRAZOLE SODIUM) [Concomitant]
  5. FISH OIL (FISH OIL) [Concomitant]
  6. METAMUCIL (GLUCOSE MONOHYDRATE, PLANTAGO OVATA HUSK) [Concomitant]
  7. VOLTAREN (DICLOFENAC SODIUM) [Concomitant]

REACTIONS (10)
  - Rash erythematous [None]
  - Local swelling [None]
  - Alanine aminotransferase increased [None]
  - Aspartate aminotransferase increased [None]
  - Plantar fasciitis [None]
  - Anaemia [None]
  - Blood creatine phosphokinase increased [None]
  - Liver function test abnormal [None]
  - Rash pruritic [None]
  - Wisdom teeth removal [None]
